FAERS Safety Report 6272776-2 (Version None)
Quarter: 2009Q3

REPORT INFORMATION
  Report Type: 
  Country: None (occurrence: None)
  Receive Date: 20090716
  Receipt Date: 20090716
  Transmission Date: 20100115
  Serious: Yes (Disabling)
  Sender: FDA-Public Use
  Company Number: None

PATIENT
  Age: 67 Year
  Sex: Female
  Weight: 86.1834 kg

DRUGS (1)
  1. LEVAQUIN [Suspect]
     Indication: SINUSITIS
     Dosage: 500 MG 1 DAY
     Dates: start: 19900117, end: 19900121

REACTIONS (10)
  - DEPRESSION [None]
  - ERYTHEMA [None]
  - GAIT DISTURBANCE [None]
  - HYPOAESTHESIA [None]
  - IRRITABLE BOWEL SYNDROME [None]
  - NEUROPATHY PERIPHERAL [None]
  - TENDON DISORDER [None]
  - TENDON PAIN [None]
  - TENDON RUPTURE [None]
  - TREMOR [None]
